FAERS Safety Report 11513646 (Version 1)
Quarter: 2015Q3

REPORT INFORMATION
  Report Type: Spontaneous
  Country: US (occurrence: US)
  Receive Date: 20150903
  Receipt Date: 20150903
  Transmission Date: 20151125
  Serious: No
  Sender: FDA-Public Use
  Company Number: US-ELI_LILLY_AND_COMPANY-US201211005008

PATIENT
  Sex: Male

DRUGS (1)
  1. CYMBALTA [Suspect]
     Active Substance: DULOXETINE HYDROCHLORIDE
     Indication: DEPRESSION
     Dosage: 30 MG, QD

REACTIONS (17)
  - Thinking abnormal [Unknown]
  - Dry mouth [Unknown]
  - Depression [Unknown]
  - Foreign body [Unknown]
  - Fear [Unknown]
  - Anxiety [Unknown]
  - Drug dose omission [Recovered/Resolved]
  - Feeling abnormal [Unknown]
  - Pain [Unknown]
  - Hyperhidrosis [Unknown]
  - Fatigue [Unknown]
  - Depressed mood [Unknown]
  - Disturbance in attention [Unknown]
  - Restlessness [Unknown]
  - Inappropriate schedule of drug administration [Recovered/Resolved]
  - Tinnitus [Unknown]
  - Diarrhoea [Recovered/Resolved]
